FAERS Safety Report 9630088 (Version 1)
Quarter: 2013Q4

REPORT INFORMATION
  Report Type: Spontaneous
  Country: JP (occurrence: JP)
  Receive Date: 20131017
  Receipt Date: 20131017
  Transmission Date: 20140711
  Serious: Yes (Hospitalization)
  Sender: FDA-Public Use
  Company Number: JP-009507513-1310JPN005622

PATIENT
  Age: 73 Year
  Sex: Male

DRUGS (9)
  1. GASTER [Suspect]
     Indication: PRODUCT USED FOR UNKNOWN INDICATION
     Dosage: 40 MG, QD
     Route: 048
     Dates: start: 20130806
  2. SAWACILLIN [Suspect]
     Indication: GASTRIC INFECTION
     Dosage: 1500 MG, QD
     Route: 048
     Dates: start: 20130730, end: 20130805
  3. PARIET [Suspect]
     Indication: HELICOBACTER INFECTION
     Dosage: 20 MG, QD
     Route: 048
     Dates: start: 20130730, end: 20130805
  4. CLARITH [Suspect]
     Indication: HELICOBACTER INFECTION
     Dosage: 400 MG, QD
     Route: 048
     Dates: start: 20130730, end: 20130805
  5. BAYASPIRIN [Concomitant]
     Dosage: UNK
  6. CRESTOR [Concomitant]
     Dosage: UNK
  7. PRAZAXA [Concomitant]
     Dosage: UNK
  8. BEPRICOR [Concomitant]
     Dosage: UNK
  9. OLMETEC [Concomitant]
     Dosage: UNK

REACTIONS (1)
  - Renal function test abnormal [Unknown]
